FAERS Safety Report 4620735-5 (Version None)
Quarter: 2005Q2

REPORT INFORMATION
  Report Type: 
  Country: None (occurrence: None)
  Receive Date: 20050321
  Receipt Date: 20040628
  Transmission Date: 20051028
  Serious: Yes (Other)
  Sender: FDA-Public Use
  Company Number: 2004-06-2264

PATIENT
  Age: 51 Year
  Sex: Female
  Weight: 67.1324 kg

DRUGS (5)
  1. PEG-INTRON [Suspect]
     Indication: HEPATITIS C
     Dosage: 96 MCG SUBCUTANEOUS
     Route: 058
     Dates: start: 20040301, end: 20040625
  2. REBETOL [Suspect]
     Indication: HEPATITIS C
     Dosage: 1000 MG QD ORAL
     Route: 048
     Dates: start: 20040301, end: 20040626
  3. NORVASC [Concomitant]
  4. PAXIL [Concomitant]
  5. CELEBREX [Concomitant]

REACTIONS (2)
  - GRAND MAL CONVULSION [None]
  - HEADACHE [None]
